FAERS Safety Report 6316854-8 (Version None)
Quarter: 2009Q3

REPORT INFORMATION
  Report Type: 
  Country: None (occurrence: None)
  Receive Date: 20090820
  Receipt Date: 20090818
  Transmission Date: 20100115
  Serious: Yes (Other)
  Sender: FDA-Public Use
  Company Number: CA-ROCHE-650853

PATIENT
  Age: 6 Year
  Sex: Male

DRUGS (1)
  1. NAPROSYN [Suspect]
     Indication: DRUG USE FOR UNKNOWN INDICATION
     Dosage: RECEIVED FOR THREE MONTHS
     Route: 048

REACTIONS (2)
  - ANAEMIA [None]
  - GASTROINTESTINAL DISORDER [None]
